FAERS Safety Report 6125477-5 (Version None)
Quarter: 2009Q1

REPORT INFORMATION
  Report Type: 
  Country: None (occurrence: None)
  Receive Date: 20090320
  Receipt Date: 20090317
  Transmission Date: 20090719
  Serious: Yes (Life-Threatening, Congenital Anomaly, Other)
  Sender: FDA-Public Use
  Company Number: PHHY2009GB09830

PATIENT
  Age: 3 Year
  Sex: Female

DRUGS (3)
  1. CARBAMAZEPINE [Suspect]
     Dosage: UNK
     Route: 064
  2. MIRTAZAPINE [Suspect]
     Route: 064
  3. OXAZEPAM [Suspect]
     Route: 064

REACTIONS (5)
  - BRAIN OPERATION [None]
  - CONGENITAL HYDROCEPHALUS [None]
  - DRUG EXPOSURE DURING PREGNANCY [None]
  - HYDROCEPHALUS [None]
  - MEDULLOBLASTOMA [None]
